FAERS Safety Report 24057889 (Version 1)
Quarter: 2024Q3

REPORT INFORMATION
  Report Type: Spontaneous
  Country: IT (occurrence: IT)
  Receive Date: 20240707
  Receipt Date: 20240707
  Transmission Date: 20241017
  Serious: Yes (Hospitalization, Other)
  Sender: DR REDDYS
  Company Number: IT-GERMAN-LIT/ITA/24/0009738

PATIENT
  Age: 3 Month

DRUGS (3)
  1. DAPTOMYCIN [Suspect]
     Active Substance: DAPTOMYCIN
     Indication: Cellulitis staphylococcal
     Dosage: 10 MG/KG/DAY
  2. AMOXICILLIN\CLAVULANIC ACID [Concomitant]
     Active Substance: AMOXICILLIN\CLAVULANIC ACID
     Indication: Cellulitis staphylococcal
  3. MEROPENEM [Concomitant]
     Active Substance: MEROPENEM
     Indication: Cellulitis staphylococcal
     Dosage: 60 MG/KG/DAY IN THREE ADMINISTRATIONS

REACTIONS (3)
  - Drug ineffective [Unknown]
  - Condition aggravated [Unknown]
  - Product use issue [Unknown]
